FAERS Safety Report 12483610 (Version 3)
Quarter: 2016Q4

REPORT INFORMATION
  Report Type: Spontaneous
  Country: IT (occurrence: IT)
  Receive Date: 20160621
  Receipt Date: 20161025
  Transmission Date: 20170207
  Serious: Yes (Other)
  Sender: FDA-Public Use
  Company Number: IT-ACCORD-041591

PATIENT
  Age: 51 Year
  Sex: Female
  Weight: 54 kg

DRUGS (2)
  1. CISPLATIN. [Suspect]
     Active Substance: CISPLATIN
     Indication: LUNG ADENOCARCINOMA
     Route: 042
     Dates: start: 20160224
  2. ALIMTA [Suspect]
     Active Substance: PEMETREXED DISODIUM
     Indication: LUNG ADENOCARCINOMA
     Route: 042
     Dates: start: 20160224

REACTIONS (6)
  - Nausea [Recovering/Resolving]
  - Asthenia [Recovering/Resolving]
  - Infusion related reaction [Recovering/Resolving]
  - Abdominal pain upper [Unknown]
  - Gastrooesophageal reflux disease [Unknown]
  - Neutropenia [Recovering/Resolving]

NARRATIVE: CASE EVENT DATE: 20160225
